FAERS Safety Report 8062761-2 (Version None)
Quarter: 2012Q1

REPORT INFORMATION
  Report Type: 
  Country: None (occurrence: None)
  Receive Date: 20120123
  Receipt Date: 20120118
  Transmission Date: 20120608
  Serious: Yes (Hospitalization)
  Sender: FDA-Public Use
  Company Number: NL-AMGEN-NLDSP2012003733

PATIENT
  Age: 65 Year
  Sex: Female
  Weight: 91 kg

DRUGS (22)
  1. VINCRISTINE [Suspect]
     Indication: DIFFUSE LARGE B-CELL LYMPHOMA
     Dosage: 2 MG, UNK
     Route: 042
     Dates: start: 20111003
  2. COTRIM [Concomitant]
     Dosage: 480 MG, QD
  3. ASCORBIC ACID W/ZINC [Concomitant]
     Dosage: 50 MG, QD
  4. FLUTICASONE PROPIONATE [Concomitant]
     Dosage: 100 MUG, UNK
  5. DOXORUBICIN HCL [Suspect]
     Indication: DIFFUSE LARGE B-CELL LYMPHOMA
     Dosage: 106 MG, UNK
     Route: 042
     Dates: start: 20111003
  6. HALOPERIDOL [Concomitant]
     Dosage: 1 MG, QD
  7. THYROX [Concomitant]
     Dosage: 100 MUG, QD
  8. FLUNITRAZEPAM [Concomitant]
     Dosage: 1 MG, QD
  9. RITUXIMAB [Suspect]
     Indication: DIFFUSE LARGE B-CELL LYMPHOMA
     Dosage: 750 MG, UNK
     Route: 042
     Dates: start: 20111003
  10. PREDNISONE [Suspect]
     Indication: DIFFUSE LARGE B-CELL LYMPHOMA
     Dosage: 100 MG, UNK
     Route: 048
     Dates: start: 20111003
  11. OMEPRAZOLE [Concomitant]
     Dosage: 40 MG, QD
  12. VALACICLOVIR [Concomitant]
     Dosage: 1000 MG, QD
  13. METOCLOPRAMIDE [Concomitant]
     Dosage: 10 MG, BID
  14. VITAMIN B COMPLEX CAP [Concomitant]
     Dosage: 1 DF, QD
  15. ONDANSETRON [Concomitant]
     Dosage: 16 MG, QD
  16. FLUVOXAMINE MALEATE [Concomitant]
     Dosage: 50 MG, BID
  17. DAGRAVIT                           /01709901/ [Concomitant]
     Dosage: 1 DF, QD
  18. NEUPOGEN [Suspect]
     Indication: DIFFUSE LARGE B-CELL LYMPHOMA
     Dosage: 6 MG, UNK
     Route: 058
     Dates: start: 20111004
  19. NEULASTA [Concomitant]
     Dosage: 6 MG, QD
  20. ACETAMINOPHEN [Concomitant]
     Dosage: UNK UNK, PRN
  21. CYCLOPHOSPHAMIDE [Suspect]
     Indication: DIFFUSE LARGE B-CELL LYMPHOMA
     Dosage: 1620 MG, UNK
     Route: 042
     Dates: start: 20111003
  22. LORAZEPAM [Concomitant]
     Dosage: 1 MG, QD

REACTIONS (1)
  - MALAISE [None]
